FAERS Safety Report 4684900-3 (Version None)
Quarter: 2005Q2

REPORT INFORMATION
  Report Type: 
  Country: None (occurrence: None)
  Receive Date: 20050608
  Receipt Date: 20050518
  Transmission Date: 20051028
  Serious: Yes (Hospitalization)
  Sender: FDA-Public Use
  Company Number: CA-ABBOTT-05P-028-0300924-00

PATIENT
  Sex: Male

DRUGS (5)
  1. MAVIK [Suspect]
     Indication: HYPERTENSION
     Route: 048
     Dates: start: 20040816
  2. TECHNAL [Concomitant]
     Indication: HEADACHE
     Dosage: SIMPLE
     Route: 048
     Dates: start: 20040816
  3. RIVACET [Concomitant]
     Indication: HEADACHE
     Route: 048
     Dates: start: 20041126, end: 20041202
  4. OXYCODONE HCL [Concomitant]
     Indication: HEADACHE
     Route: 048
     Dates: start: 20041202
  5. AMITRIPTYLINE HYDROCHLORIDE [Concomitant]
     Indication: HEADACHE
     Route: 048
     Dates: start: 20041225

REACTIONS (9)
  - CARTILAGE INJURY [None]
  - CHONDRITIS [None]
  - CONCUSSION [None]
  - HYPOACUSIS [None]
  - OPEN WOUND [None]
  - PERICARDIAL EFFUSION [None]
  - RIB FRACTURE [None]
  - ROAD TRAFFIC ACCIDENT [None]
  - SUBARACHNOID HAEMORRHAGE [None]
